FAERS Safety Report 9291591 (Version 1)
Quarter: 2013Q2

REPORT INFORMATION
  Report Type: Other
  Country: GB (occurrence: GB)
  Receive Date: 20130515
  Receipt Date: 20130515
  Transmission Date: 20140414
  Serious: Yes (Other)
  Sender: FDA-Public Use
  Company Number: GB-ACTAVIS-2013-08369

PATIENT
  Age: 14 Year
  Sex: Female

DRUGS (3)
  1. PARACETAMOL (UNKNOWN) [Suspect]
     Indication: PRURITUS
     Dosage: 1 G, UNKNOWN
     Route: 048
     Dates: start: 20130415, end: 20130417
  2. PIRITON [Suspect]
     Indication: PRURITUS GENERALISED
     Dosage: 12 MG, UNKNOWN
     Route: 048
     Dates: start: 20130415, end: 20130415
  3. VERTIGON /00013304/ [Suspect]
     Indication: PRURITUS GENERALISED
     Dosage: 128 MG, UNKNOWN
     Route: 048
     Dates: start: 20130415, end: 20130417

REACTIONS (4)
  - Rhabdomyolysis [Recovered/Resolved]
  - Confusional state [Recovered/Resolved]
  - Gait disturbance [Recovered/Resolved]
  - Agitation [Recovered/Resolved]
